FAERS Safety Report 15424505 (Version 1)
Quarter: 2018Q3

REPORT INFORMATION
  Report Type: Spontaneous
  Country: AT (occurrence: AT)
  Receive Date: 20180925
  Receipt Date: 20180925
  Transmission Date: 20181010
  Serious: Yes (Hospitalization)
  Sender: FDA-Public Use
  Company Number: AT-ABBVIE-18S-009-2492036-00

PATIENT
  Age: 3 Month

DRUGS (2)
  1. SYNAGIS [Suspect]
     Active Substance: PALIVIZUMAB
     Indication: ANTIVIRAL PROPHYLAXIS
     Dosage: 1ST DOSE: 15?FEB?2018??2ND DOSE: 12?MAR?2018  (1ST INTERVAL: 25 DAYS)
     Route: 050
     Dates: start: 20180215
  2. SYNAGIS [Suspect]
     Active Substance: PALIVIZUMAB
     Dosage: 1ST DOSE: 15?FEB?2018??2ND DOSE: 12?MAR?2018  (1ST INTERVAL: 25 DAYS)
     Route: 050
     Dates: start: 20180312

REACTIONS (13)
  - Hypercapnia [Unknown]
  - Pallor [Unknown]
  - Vomiting [Unknown]
  - Oxygen saturation decreased [Recovered/Resolved]
  - Respiratory syncytial virus infection [Unknown]
  - General physical health deterioration [Unknown]
  - Respiratory syncytial virus test positive [Unknown]
  - Tachycardia [Unknown]
  - Rhinitis [Unknown]
  - Unevaluable event [Unknown]
  - Rhinorrhoea [Unknown]
  - Fluid intake reduced [Recovered/Resolved]
  - Leukopenia [Unknown]

NARRATIVE: CASE EVENT DATE: 201803
